FAERS Safety Report 16553828 (Version 1)
Quarter: 2019Q3

REPORT INFORMATION
  Report Type: Report from Study
  Country: US (occurrence: US)
  Receive Date: 20190710
  Receipt Date: 20190710
  Transmission Date: 20191004
  Serious: Yes (Other)
  Sender: FDA-Public Use
  Company Number: US-TAKEDA-2019TUS041515

PATIENT
  Age: 49 Year
  Weight: 103.2 kg

DRUGS (4)
  1. IXAZOMIB [Suspect]
     Active Substance: IXAZOMIB
     Indication: NON-RENAL CELL CARCINOMA OF KIDNEY
     Dosage: 4 MILLIGRAM, Q2WEEKS
     Route: 048
     Dates: start: 20190319
  2. GEMCITABINE. [Suspect]
     Active Substance: GEMCITABINE
     Dosage: 559 MILLIGRAM/SQ. METER
     Route: 065
     Dates: start: 20190508
  3. GEMCITABINE. [Suspect]
     Active Substance: GEMCITABINE
     Indication: NON-RENAL CELL CARCINOMA OF KIDNEY
     Dosage: 756 MILLIGRAM/SQ. METER, Q2WEEKS
     Route: 042
  4. DOXORUBICIN [Suspect]
     Active Substance: DOXORUBICIN
     Indication: NON-RENAL CELL CARCINOMA OF KIDNEY
     Dosage: 21 MILLIGRAM/SQ. METER, Q2WEEKS
     Route: 042
     Dates: start: 20190605

REACTIONS (1)
  - Acute hepatitis B [Unknown]

NARRATIVE: CASE EVENT DATE: 20190703
